FAERS Safety Report 4617850-9 (Version None)
Quarter: 2005Q1

REPORT INFORMATION
  Report Type: 
  Country: None (occurrence: None)
  Receive Date: 20050324
  Receipt Date: 20050118
  Transmission Date: 20050727
  Serious: Yes (Death, Hospitalization)
  Sender: FDA-Public Use
  Company Number: JP-GLAXOSMITHKLINE-B0365215A

PATIENT
  Age: 85 Year
  Sex: Female

DRUGS (11)
  1. ZEFIX [Suspect]
     Indication: HEPATITIS B
     Dosage: 100MG PER DAY
     Route: 048
     Dates: start: 20041204, end: 20050210
  2. PREDNISOLONE [Concomitant]
     Indication: HEPATITIS
     Route: 048
     Dates: start: 20041210
  3. ADALAT [Concomitant]
     Indication: HYPERTENSION
     Dosage: 20MG PER DAY
     Route: 048
     Dates: start: 20041130, end: 20050111
  4. BLOPRESS [Concomitant]
     Indication: HYPERTENSION
     Dosage: 8MG PER DAY
     Route: 048
     Dates: start: 20041119, end: 20050112
  5. RABEPRAZOLE SODIUM [Concomitant]
     Indication: GASTRIC ULCER
     Dosage: 10MG PER DAY
     Route: 048
     Dates: start: 20041203, end: 20050106
  6. URSO 250 [Concomitant]
     Indication: LIVER DISORDER
     Dosage: 300MG PER DAY
     Route: 048
     Dates: start: 20040901, end: 20041129
  7. AMLODIN [Concomitant]
     Indication: HYPERTENSION
     Dosage: 5MG PER DAY
     Route: 048
     Dates: end: 20041129
  8. BONALON [Concomitant]
     Indication: OSTEOPOROSIS
     Dosage: 5MG PER DAY
     Route: 048
     Dates: end: 20041129
  9. PURSENNID [Concomitant]
     Indication: CONSTIPATION
     Dosage: 12MG PER DAY
     Route: 048
  10. HUMULIN R [Concomitant]
     Route: 058
     Dates: start: 20041205
  11. D-ALFA [Concomitant]
     Indication: OSTEOPOROSIS
     Dosage: .5MCG PER DAY
     Route: 048
     Dates: start: 20041217

REACTIONS (2)
  - PLATELET COUNT DECREASED [None]
  - PNEUMOCYSTIS JIROVECI PNEUMONIA [None]
